FAERS Safety Report 7945862-6 (Version None)
Quarter: 2011Q4

REPORT INFORMATION
  Report Type: 
  Country: None (occurrence: None)
  Receive Date: 20111129
  Receipt Date: 20111116
  Transmission Date: 20120403
  Serious: Yes (Hospitalization, Other)
  Sender: FDA-Public Use
  Company Number: PHHY2011BR100724

PATIENT
  Sex: Male

DRUGS (1)
  1. FORMOTEROL FUMARATE [Suspect]
     Dosage: MATERNAL DOSE
     Route: 064

REACTIONS (1)
  - RESPIRATORY DISTRESS [None]
